FAERS Safety Report 4945038-0 (Version None)
Quarter: 2006Q1

REPORT INFORMATION
  Report Type: 
  Country: None (occurrence: None)
  Receive Date: 20060117
  Receipt Date: 20041124
  Transmission Date: 20060701
  Serious: Yes (Other)
  Sender: FDA-Public Use
  Company Number: A03200403969

PATIENT
  Age: 77 Year
  Sex: Male
  Weight: 71.6683 kg

DRUGS (2)
  1. PLAVIX [Suspect]
     Indication: IMPLANTABLE DEFIBRILLATOR INSERTION
     Dosage: 75 MG QD - ORAL
     Route: 048
  2. COUMADIN [Suspect]
     Dosage: ORAL
     Route: 048

REACTIONS (2)
  - ASTHENIA [None]
  - HAEMORRHAGE [None]
